FAERS Safety Report 8975574 (Version 2)
Quarter: 2013Q1

REPORT INFORMATION
  Report Type: Spontaneous
  Country: US (occurrence: US)
  Receive Date: 20121219
  Receipt Date: 20130131
  Transmission Date: 20140127
  Serious: Yes (Other)
  Sender: FDA-Public Use
  Company Number: US-PFIZER INC-2012322471

PATIENT
  Age: 81 Year
  Sex: Male
  Weight: 91 kg

DRUGS (1)
  1. LYRICA [Suspect]
     Indication: NEUROPATHY PERIPHERAL
     Dosage: UNK, DAILY

REACTIONS (2)
  - Weight increased [Unknown]
  - Drug ineffective [Unknown]
